FAERS Safety Report 10081962 (Version 1)
Quarter: 2014Q2

REPORT INFORMATION
  Report Type: Spontaneous
  Country: US (occurrence: US)
  Receive Date: 20140416
  Receipt Date: 20140416
  Transmission Date: 20141212
  Serious: Yes (Other)
  Sender: FDA-Public Use
  Company Number: US-BAYER-2014-054591

PATIENT
  Age: 49 Year
  Sex: Female
  Weight: 93.42 kg

DRUGS (7)
  1. YASMIN [Suspect]
  2. COZAAR [Concomitant]
     Dosage: 50 MG, UNK
  3. SYNTHROID [Concomitant]
     Dosage: 125 MG, UNK
  4. BYETTA [Concomitant]
  5. TRICOR [Concomitant]
  6. VYTORIN [Concomitant]
     Dosage: 10-80 MG
  7. NITROGLYCERINE [Concomitant]
     Dosage: 0.4 MG, UNK

REACTIONS (1)
  - Deep vein thrombosis [None]
